FAERS Safety Report 9366884 (Version 3)
Quarter: 2013Q3

REPORT INFORMATION
  Report Type: Report from Study
  Country: CN (occurrence: CN)
  Receive Date: 20130625
  Receipt Date: 20130725
  Transmission Date: 20140515
  Serious: Yes (Hospitalization)
  Sender: FDA-Public Use
  Company Number: CN-ABBOTT-13P-035-1105157-00

PATIENT
  Age: 59 Year
  Sex: Male
  Weight: 51 kg

DRUGS (4)
  1. ISONIAZIDE [Concomitant]
     Indication: TUBERCULOSIS
     Dates: start: 20130115, end: 20130125
  2. RIFAPENTINE [Concomitant]
     Indication: TUBERCULOSIS
     Dates: start: 20130115, end: 20130125
  3. ETHAMBUTOL [Concomitant]
     Indication: TUBERCULOSIS
     Dates: start: 20130115, end: 20130125
  4. HUMIRA [Suspect]
     Indication: PSORIASIS
     Route: 058
     Dates: start: 20120815, end: 20121226

REACTIONS (2)
  - Pulmonary mycosis [Not Recovered/Not Resolved]
  - Tuberculosis [Not Recovered/Not Resolved]
